FAERS Safety Report 7209761 (Version 2)
Quarter: 2014Q3

REPORT INFORMATION
  Report Type: Spontaneous
  Country: US (occurrence: US)
  Receive Date: 20091210
  Receipt Date: 20140707
  Transmission Date: 20150326
  Serious: No
  Sender: FDA-Public Use
  Company Number: US-AMGEN-KDL358326

PATIENT
  Age: 57 Year
  Sex: Female

DRUGS (8)
  1. TOPAMAX [Concomitant]
     Active Substance: TOPIRAMATE
     Dosage: UNK UNK, UNK
  2. ENBREL [Suspect]
     Active Substance: ETANERCEPT
     Indication: RHEUMATOID ARTHRITIS
     Dosage: 25 MG, 2 TIMES/WK
     Route: 058
     Dates: start: 1998
  3. CELECOXIB. [Concomitant]
     Active Substance: CELECOXIB
     Dosage: UNK UNK, UNK
  4. PREDNISONE. [Concomitant]
     Active Substance: PREDNISONE
     Dosage: UNK UNK, UNK
  5. ALEVE [Concomitant]
     Active Substance: NAPROXEN SODIUM
     Dosage: UNK UNK, UNK
  6. ALLERGY MEDICATION NOS [Concomitant]
     Dosage: UNK UNK, UNK
  7. ENBREL [Suspect]
     Active Substance: ETANERCEPT
     Dosage: UNK
     Route: 065
  8. SYNTHROID [Concomitant]
     Active Substance: LEVOTHYROXINE SODIUM
     Dosage: UNK UNK, UNK

REACTIONS (3)
  - Infection [Unknown]
  - Sinusitis [Unknown]
  - Migraine [Unknown]

NARRATIVE: CASE EVENT DATE: 2008
